FAERS Safety Report 9619103 (Version 2)
Quarter: 2013Q4

REPORT INFORMATION
  Report Type: Spontaneous
  Country: US (occurrence: US)
  Receive Date: 20131014
  Receipt Date: 20131014
  Transmission Date: 20140711
  Serious: Yes (Other)
  Sender: FDA-Public Use
  Company Number: US-SANOFI-AVENTIS-2013SA093555

PATIENT
  Age: 78 Year
  Sex: Female

DRUGS (2)
  1. LANTUS SOLOSTAR [Suspect]
     Indication: TYPE 2 DIABETES MELLITUS
     Dosage: TAKEN FROM: 3 YRS DOSE:20 UNIT(S)
     Route: 051
  2. SOLOSTAR [Concomitant]

REACTIONS (7)
  - Pneumonia [Recovering/Resolving]
  - Insomnia [Unknown]
  - Dizziness [Unknown]
  - Nausea [Unknown]
  - Pain [Recovering/Resolving]
  - Cold sweat [Unknown]
  - Injection site pain [Unknown]
